FAERS Safety Report 13304534 (Version 1)
Quarter: 2017Q1

REPORT INFORMATION
  Report Type: Spontaneous
  Country: FR (occurrence: FR)
  Receive Date: 20170308
  Receipt Date: 20170308
  Transmission Date: 20170428
  Serious: Yes (Hospitalization, Other)
  Sender: FDA-Public Use
  Company Number: FR-ASTRAZENECA-2017SE23304

PATIENT
  Age: 66 Year
  Sex: Male

DRUGS (6)
  1. SALBUTAMOL [Suspect]
     Active Substance: ALBUTEROL
     Indication: BRONCHOSPASM
     Dosage: MYLAN 2.5MG/2.5ML
     Route: 055
     Dates: start: 201609, end: 201609
  2. METRONIDAZOLE. [Suspect]
     Active Substance: METRONIDAZOLE
     Indication: PNEUMONIA
     Route: 042
  3. HEPARINE SODIC PANPHARMA [Suspect]
     Active Substance: HEPARIN SODIUM
     Indication: EMBOLISM
     Dosage: SODIC PANPHARMA 25 000UI/ML
     Route: 042
     Dates: start: 201609, end: 201609
  4. INEXIUM [Suspect]
     Active Substance: ESOMEPRAZOLE
     Route: 048
  5. RACECADOTRIL [Suspect]
     Active Substance: RACECADOTRIL
     Indication: DIARRHOEA
     Dosage: 100 MG AS REQUIRED
     Route: 048
     Dates: start: 201609, end: 201609
  6. CEFOTAXIME [Suspect]
     Active Substance: CEFOTAXIME SODIUM
     Indication: PNEUMONIA
     Route: 042
     Dates: start: 20160921

REACTIONS (12)
  - Rash maculo-papular [Recovered/Resolved]
  - Toxic skin eruption [Unknown]
  - Bronchospasm [Unknown]
  - Streptococcal infection [Unknown]
  - Clostridium colitis [Unknown]
  - Embolism [Unknown]
  - Lymphadenopathy [Unknown]
  - Diarrhoea [Unknown]
  - Septic shock [Recovered/Resolved]
  - Renal impairment [Unknown]
  - Rash erythematous [Unknown]
  - Lung disorder [Unknown]

NARRATIVE: CASE EVENT DATE: 20160930
